FAERS Safety Report 21916851 (Version 2)
Quarter: 2024Q4

REPORT INFORMATION
  Report Type: Report from Study
  Country: US (occurrence: US)
  Receive Date: 20230126
  Receipt Date: 20241101
  Transmission Date: 20250114
  Serious: Yes (Death)
  Sender: ITALFARMACO SPA
  Company Number: US-ITALFARMACO SPA-2137090

PATIENT
  Age: 62 Year
  Sex: Female

DRUGS (8)
  1. TIGLUTIK [Suspect]
     Active Substance: RILUZOLE
     Indication: Amyotrophic lateral sclerosis
     Dates: start: 20220215
  2. ATROPINE [Concomitant]
     Active Substance: ATROPINE
  3. TYLENOL [Concomitant]
     Active Substance: ACETAMINOPHEN
  4. TRAMADOL [Concomitant]
     Active Substance: TRAMADOL
  5. LISINOPRIL [Concomitant]
     Active Substance: LISINOPRIL
  6. IMIPRAMINE (IMIPRAMINE) [Concomitant]
  7. GLYCOPYRROLATE [Concomitant]
     Active Substance: GLYCOPYRROLATE
  8. CLARITINE (LORATADINE) [Concomitant]

REACTIONS (1)
  - Death [Fatal]
